FAERS Safety Report 9273845 (Version 2)
Quarter: 2013Q2

REPORT INFORMATION
  Report Type: Spontaneous
  Country: US (occurrence: US)
  Receive Date: 20130506
  Receipt Date: 20130604
  Transmission Date: 20140414
  Serious: No
  Sender: FDA-Public Use
  Company Number: US-AMGEN-USASP2013026798

PATIENT
  Age: 62 Year
  Sex: Female

DRUGS (3)
  1. ENBREL [Suspect]
     Indication: RHEUMATOID ARTHRITIS
     Dosage: 50 MG, QWK
     Dates: start: 20130412
  2. METHOTREXATE [Concomitant]
     Dosage: 2.5 MG, 8 TABS WEEKLY, UNK
     Dates: start: 2011
  3. IBUPROFEN [Concomitant]
     Indication: HEADACHE
     Dosage: UNK

REACTIONS (2)
  - Joint swelling [Recovering/Resolving]
  - Fatigue [Recovering/Resolving]
